FAERS Safety Report 5861413-4 (Version None)
Quarter: 2008Q3

REPORT INFORMATION
  Report Type: 
  Country: None (occurrence: None)
  Receive Date: 20080827
  Receipt Date: 20080425
  Transmission Date: 20090109
  Serious: No
  Sender: FDA-Public Use
  Company Number: US-ABBOTT-08P-163-0449015-00

PATIENT
  Sex: Male
  Weight: 83.99 kg

DRUGS (11)
  1. COATED PDS [Suspect]
     Indication: HIGH DENSITY LIPOPROTEIN INCREASED
     Route: 048
     Dates: start: 20080414
  2. COATED PDS [Suspect]
     Route: 048
     Dates: start: 20080421
  3. ACETYLSALICYLIC ACID SRT [Concomitant]
     Indication: PROPHYLAXIS
     Route: 048
  4. ACETYLSALICYLIC ACID SRT [Concomitant]
     Indication: FLUSHING
  5. OLSALAZINE SODIUM [Concomitant]
     Indication: COLITIS ULCERATIVE
     Route: 048
  6. NOVALOG INSULIN [Concomitant]
     Indication: DIABETES MELLITUS
     Route: 058
  7. NOVALIN N INSULIN [Concomitant]
     Indication: DIABETES MELLITUS
     Dosage: 38 U IN AM AND 24 U IN THE PM
     Route: 058
  8. ATACAND ACT [Concomitant]
     Indication: HYPERTENSION
     Route: 048
  9. AMLODIPINE [Concomitant]
     Indication: HYPERTENSION
     Route: 048
  10. MORNIFLUMATE [Concomitant]
     Indication: PROSTATIC DISORDER
     Route: 048
  11. VITACAL [Concomitant]
     Indication: DRUG USE FOR UNKNOWN INDICATION
     Route: 048

REACTIONS (1)
  - BLOOD GLUCOSE INCREASED [None]
